FAERS Safety Report 7785471-5 (Version None)
Quarter: 2011Q3

REPORT INFORMATION
  Report Type: 
  Country: None (occurrence: None)
  Receive Date: 20110929
  Receipt Date: 20110923
  Transmission Date: 20111222
  Serious: Yes (Other)
  Sender: FDA-Public Use
  Company Number: PHHY2011DE84518

PATIENT
  Age: 82 Year
  Sex: Female
  Weight: 85 kg

DRUGS (4)
  1. CALCIUM CARBONATE [Concomitant]
     Indication: OSTEOPOROSIS
     Dosage: 1.2 G, UNK
  2. ZOLEDRONOC ACID [Suspect]
     Indication: OSTEOPOROSIS
     Dosage: 5 MG, ONCE YEARLY
     Route: 042
     Dates: start: 20100426, end: 20100426
  3. VITAMIN D [Concomitant]
     Indication: OSTEOPOROSIS
     Dosage: 800 IU, UNK
  4. ACETAMINOPHEN [Concomitant]
     Indication: PROPHYLAXIS
     Dosage: 1 G, UNK
     Dates: start: 20100426, end: 20100427

REACTIONS (3)
  - STRESS FRACTURE [None]
  - OSTEOPOROSIS [None]
  - DRUG INEFFECTIVE [None]
